FAERS Safety Report 8578595-6 (Version None)
Quarter: 2012Q3

REPORT INFORMATION
  Report Type: 
  Country: None (occurrence: None)
  Receive Date: 20120808
  Receipt Date: 20120730
  Transmission Date: 20120928
  Serious: Yes (Other)
  Sender: FDA-Public Use
  Company Number: US-BRISTOL-MYERS SQUIBB COMPANY-16820151

PATIENT
  Age: 52 Year
  Sex: Female
  Weight: 57 kg

DRUGS (6)
  1. FISH OIL [Concomitant]
  2. NABUMETONE [Concomitant]
  3. ARAVA [Concomitant]
  4. CHONDROITIN [Concomitant]
  5. ABATACEPT SUBQ INJECTION 125MG/ML [Suspect]
     Indication: RHEUMATOID ARTHRITIS
     Dosage: INTD FOR THREE DAYS,ORENCIA
     Route: 058
     Dates: start: 20111001
  6. GLUCOSAMINE [Concomitant]

REACTIONS (1)
  - FOOD POISONING [None]
